FAERS Safety Report 11331856 (Version 1)
Quarter: 2015Q3

REPORT INFORMATION
  Report Type: Spontaneous
  Country: US (occurrence: US)
  Receive Date: 20150803
  Receipt Date: 20150803
  Transmission Date: 20151125
  Serious: No
  Sender: FDA-Public Use
  Company Number: US-ELI_LILLY_AND_COMPANY-US200804002896

PATIENT
  Age: 94 Year
  Sex: Male

DRUGS (4)
  1. NAMENDA [Concomitant]
     Active Substance: MEMANTINE HYDROCHLORIDE
     Indication: DEMENTIA ALZHEIMER^S TYPE
  2. ZYPREXA [Suspect]
     Active Substance: OLANZAPINE
     Indication: AGGRESSION
     Dosage: 2.5 MG, 2/D
     Dates: start: 20080327
  3. LASIX [Concomitant]
     Active Substance: FUROSEMIDE
     Indication: BLADDER DISORDER
  4. FLOMAX [Concomitant]
     Active Substance: TAMSULOSIN HYDROCHLORIDE
     Indication: PROSTATE CANCER

REACTIONS (9)
  - Insomnia [Unknown]
  - Feeling abnormal [Unknown]
  - Crying [Unknown]
  - Agitation [Unknown]
  - Asthenia [Unknown]
  - Gait disturbance [Unknown]
  - Dyspnoea [Unknown]
  - Mood swings [Unknown]
  - Incoherent [Unknown]

NARRATIVE: CASE EVENT DATE: 20080409
